FAERS Safety Report 20019405 (Version 1)
Quarter: 2021Q4

REPORT INFORMATION
  Report Type: Spontaneous
  Country: US (occurrence: US)
  Receive Date: 20211101
  Receipt Date: 20211101
  Transmission Date: 20220303
  Serious: No
  Sender: FDA-Public Use
  Company Number: US-SA-SAC20211027001259

PATIENT
  Sex: Female
  Weight: 77.11 kg

DRUGS (15)
  1. DUPIXENT [Suspect]
     Active Substance: DUPILUMAB
     Indication: Dermatitis
     Dosage: 300 MG, QOW
  2. DUPIXENT [Suspect]
     Active Substance: DUPILUMAB
     Indication: Asthma
  3. COPAXONE [Concomitant]
     Active Substance: GLATIRAMER ACETATE
  4. DICLOFENAC [Concomitant]
     Active Substance: DICLOFENAC
     Indication: Osteoarthritis
  5. TIZANIDINE [Concomitant]
     Active Substance: TIZANIDINE
  6. GABAPENTIN [Concomitant]
     Active Substance: GABAPENTIN
  7. ESTRADIOL [Concomitant]
     Active Substance: ESTRADIOL
  8. TAMSULOSIN [Concomitant]
     Active Substance: TAMSULOSIN
  9. AZELASTINE [Concomitant]
     Active Substance: AZELASTINE
  10. ALBUTEROL SULFATE [Concomitant]
     Active Substance: ALBUTEROL SULFATE
     Indication: Asthma
  11. HALOBETASOL PROPIONATE [Concomitant]
     Active Substance: HALOBETASOL PROPIONATE
  12. HYDROCHLOROTHIAZIDE [Concomitant]
     Active Substance: HYDROCHLOROTHIAZIDE
     Indication: Hypertension
  13. DONEPEZIL [Concomitant]
     Active Substance: DONEPEZIL
  14. FLUOXETINE [Concomitant]
     Active Substance: FLUOXETINE HYDROCHLORIDE
     Indication: Major depression
  15. PROVIMIN [Concomitant]

REACTIONS (1)
  - Product use issue [Unknown]
